FAERS Safety Report 9068875 (Version 1)
Quarter: 2013Q1

REPORT INFORMATION
  Report Type: Spontaneous
  Country: US (occurrence: US)
  Receive Date: 20130215
  Receipt Date: 20130215
  Transmission Date: 20140127
  Serious: Yes (Hospitalization)
  Sender: FDA-Public Use
  Company Number: US-ELI_LILLY_AND_COMPANY-US201301007557

PATIENT
  Sex: Female
  Weight: 54 kg

DRUGS (4)
  1. ADCIRCA [Suspect]
     Indication: COR PULMONALE CHRONIC
     Dosage: 40 MG, QD
     Dates: start: 201301
  2. TYVASO [Concomitant]
  3. REMODULIN [Concomitant]
     Indication: PULMONARY HYPERTENSION
     Dosage: 3 DF, QID
     Route: 042
     Dates: start: 20130118
  4. LETAIRIS [Concomitant]

REACTIONS (4)
  - Cough [Recovered/Resolved]
  - Vomiting [Recovered/Resolved]
  - Headache [Recovered/Resolved]
  - Nausea [Recovered/Resolved]
